FAERS Safety Report 6836370-4 (Version None)
Quarter: 2010Q3

REPORT INFORMATION
  Report Type: 
  Country: None (occurrence: None)
  Receive Date: 20100713
  Receipt Date: 20100630
  Transmission Date: 20110219
  Serious: Yes (Other)
  Sender: FDA-Public Use
  Company Number: JP-ELI_LILLY_AND_COMPANY-JP201006008081

PATIENT
  Age: 8 Year
  Sex: Male

DRUGS (1)
  1. ATOMOXETINE HCL [Suspect]
     Dosage: 30 MG, DAILY (1/D)
     Route: 048
     Dates: start: 20090723, end: 20100608

REACTIONS (3)
  - HEPATIC FUNCTION ABNORMAL [None]
  - INFECTION [None]
  - VOMITING [None]
